FAERS Safety Report 18095139 (Version 1)
Quarter: 2020Q3

REPORT INFORMATION
  Report Type: Spontaneous
  Country: US (occurrence: US)
  Receive Date: 20200731
  Receipt Date: 20200731
  Transmission Date: 20201103
  Serious: Yes (Other)
  Sender: FDA-Public Use
  Company Number: US-STRIDES ARCOLAB LIMITED-2019SP009537

PATIENT
  Age: 25 Year
  Sex: Male

DRUGS (12)
  1. MYCOPHENOLATE MOFETIL. [Suspect]
     Active Substance: MYCOPHENOLATE MOFETIL
     Indication: BONE MARROW TRANSPLANT
  2. MELPHALAN. [Suspect]
     Active Substance: MELPHALAN
     Indication: BONE MARROW TRANSPLANT
  3. ALEMTUZUMABUM [Suspect]
     Active Substance: ALEMTUZUMAB
     Indication: BONE MARROW TRANSPLANT
  4. FLUDARABINE [Suspect]
     Active Substance: FLUDARABINE PHOSPHATE
     Indication: BONE MARROW CONDITIONING REGIMEN
  5. MYCOPHENOLATE MOFETIL. [Suspect]
     Active Substance: MYCOPHENOLATE MOFETIL
     Indication: GRAFT VERSUS HOST DISEASE IN GASTROINTESTINAL TRACT
     Dosage: UNK
     Route: 065
  6. ALEMTUZUMABUM [Suspect]
     Active Substance: ALEMTUZUMAB
     Indication: BONE MARROW CONDITIONING REGIMEN
  7. TACROLIMUS. [Suspect]
     Active Substance: TACROLIMUS
     Indication: PROPHYLAXIS AGAINST GRAFT VERSUS HOST DISEASE
     Dosage: UNK
     Route: 065
  8. METHOTREXATE. [Suspect]
     Active Substance: METHOTREXATE
     Indication: PROPHYLAXIS AGAINST GRAFT VERSUS HOST DISEASE
  9. TACROLIMUS. [Suspect]
     Active Substance: TACROLIMUS
     Indication: BONE MARROW TRANSPLANT
  10. FLUDARABINE [Suspect]
     Active Substance: FLUDARABINE PHOSPHATE
     Indication: BONE MARROW TRANSPLANT
  11. METHOTREXATE. [Suspect]
     Active Substance: METHOTREXATE
     Indication: BONE MARROW TRANSPLANT
     Dosage: UNK
     Route: 065
  12. MELPHALAN. [Suspect]
     Active Substance: MELPHALAN
     Indication: BONE MARROW CONDITIONING REGIMEN

REACTIONS (12)
  - Graft versus host disease in gastrointestinal tract [Unknown]
  - Seizure [Recovered/Resolved]
  - Off label use [Unknown]
  - Thrombotic microangiopathy [Unknown]
  - Vasogenic cerebral oedema [Unknown]
  - Hypertension [Unknown]
  - Disease recurrence [Unknown]
  - Posterior reversible encephalopathy syndrome [Unknown]
  - Headache [Unknown]
  - Status epilepticus [Unknown]
  - Proteinuria [Unknown]
  - Haemorrhage intracranial [Unknown]
